FAERS Safety Report 5300066-0 (Version None)
Quarter: 2007Q2

REPORT INFORMATION
  Report Type: 
  Country: None (occurrence: None)
  Receive Date: 20070410
  Receipt Date: 20070403
  Transmission Date: 20071010
  Serious: Yes (Hospitalization)
  Sender: FDA-Public Use
  Company Number: A0645076A

PATIENT
  Age: 24 Month
  Sex: Male
  Weight: 11.975 kg

DRUGS (2)
  1. AUGMENTIN '125' [Suspect]
     Indication: EAR INFECTION
     Dosage: TWICE PER DAY/ORAL
     Route: 048
     Dates: start: 20070317, end: 20070327
  2. CLARITHROMYCIN [Suspect]
     Indication: EAR INFECTION
     Dates: start: 20070330, end: 20070402

REACTIONS (3)
  - EAR INFECTION [None]
  - HYPERHIDROSIS [None]
  - HYPOTHERMIA [None]
